FAERS Safety Report 5084500-X (Version None)
Quarter: 2006Q3

REPORT INFORMATION
  Report Type: 
  Country: None (occurrence: None)
  Receive Date: 20060814
  Receipt Date: 20060808
  Transmission Date: 20061208
  Serious: Yes (Hospitalization)
  Sender: FDA-Public Use
  Company Number: HQWYE872613JUL06

PATIENT
  Age: 37 Year
  Sex: Female

DRUGS (1)
  1. SUPRAX [Suspect]
     Indication: SINUSITIS
     Dosage: 400 MG DAILY
     Route: 048
     Dates: start: 20060301

REACTIONS (5)
  - ANXIETY [None]
  - CLOSTRIDIUM DIFFICILE COLITIS [None]
  - CONDITION AGGRAVATED [None]
  - IRRITABLE BOWEL SYNDROME [None]
  - WEIGHT DECREASED [None]
